FAERS Safety Report 5296868-X (Version None)
Quarter: 2007Q2

REPORT INFORMATION
  Report Type: 
  Country: None (occurrence: None)
  Receive Date: 20070413
  Receipt Date: 20070404
  Transmission Date: 20071010
  Serious: Yes (Other)
  Sender: FDA-Public Use
  Company Number: US-PFIZER INC-2007028057

PATIENT
  Sex: Male

DRUGS (8)
  1. CAMPTOSAR [Suspect]
     Indication: GASTRIC CANCER
  2. ANTIEMETICS AND ANTINAUSEANTS [Concomitant]
  3. CORTICOSTEROIDS [Concomitant]
  4. ALOXI [Concomitant]
  5. DECADRON [Concomitant]
  6. CISPLATIN [Concomitant]
  7. TAXOTERE [Concomitant]
  8. FLUOROURACIL [Concomitant]

REACTIONS (2)
  - LYMPHADENOPATHY [None]
  - TACHYCARDIA [None]
